FAERS Safety Report 6092592-4 (Version None)
Quarter: 2009Q1

REPORT INFORMATION
  Report Type: 
  Country: None (occurrence: None)
  Receive Date: 20090225
  Receipt Date: 20080521
  Transmission Date: 20090719
  Serious: No
  Sender: FDA-Public Use
  Company Number: US-BRISTOL-MYERS SQUIBB COMPANY-14199855

PATIENT
  Age: 26 Year
  Sex: Female
  Weight: 48 kg

DRUGS (1)
  1. KENALOG [Suspect]
     Indication: BACK PAIN
     Dosage: RECEIVED INJECTION ON JAN 2008 OR FEB 2008

REACTIONS (2)
  - INJECTION SITE ATROPHY [None]
  - INJECTION SITE PAIN [None]
